FAERS Safety Report 9729275 (Version 1)
Quarter: 2013Q4

REPORT INFORMATION
  Report Type: Spontaneous
  Country: BR (occurrence: BR)
  Receive Date: 20131204
  Receipt Date: 20131204
  Transmission Date: 20140711
  Serious: Yes (Other)
  Sender: FDA-Public Use
  Company Number: BR-BRISTOL-MYERS SQUIBB COMPANY-19850973

PATIENT
  Age: 84 Year
  Sex: Female
  Weight: 60 kg

DRUGS (3)
  1. BARACLUDE TABS 0.5 MG [Suspect]
     Indication: HEPATITIS B
     Dosage: 1MG,LOT NUMBER:2B6015M,FEB-2012,FEB-2014
     Route: 048
  2. INSULIN [Concomitant]
     Indication: DIABETES MELLITUS
     Route: 058
  3. EXELON [Concomitant]
     Indication: DEMENTIA ALZHEIMER^S TYPE
     Route: 048

REACTIONS (2)
  - Pancreatic carcinoma [Unknown]
  - Circumstance or information capable of leading to medication error [Unknown]
